FAERS Safety Report 22646030 (Version 1)
Quarter: 2023Q2

REPORT INFORMATION
  Report Type: Spontaneous
  Country: US (occurrence: None)
  Receive Date: 20230626
  Receipt Date: 20230626
  Transmission Date: 20230721
  Serious: Yes (Death)
  Sender: FDA-Public Use
  Company Number: None

PATIENT
  Age: 79 Year
  Sex: Male
  Weight: 96.2 kg

DRUGS (14)
  1. REPATHA [Suspect]
     Active Substance: EVOLOCUMAB
     Dosage: OTHER FREQUENCY : EVERY 14 DAYS;?
     Route: 058
     Dates: start: 20211026, end: 20230404
  2. albuterol 0.083% nebulizer [Concomitant]
  3. ASPIRIN [Concomitant]
     Active Substance: ASPIRIN
  4. folic acid 800mcg [Concomitant]
  5. FUROSEMIDE [Concomitant]
     Active Substance: FUROSEMIDE
  6. GABAPENTIN [Concomitant]
     Active Substance: GABAPENTIN
  7. PREDNISONE [Concomitant]
     Active Substance: PREDNISONE
  8. VALSARTAN [Concomitant]
     Active Substance: VALSARTAN
  9. DICLOFENAC [Concomitant]
     Active Substance: DICLOFENAC
  10. ACETAMINOPHEN [Concomitant]
     Active Substance: ACETAMINOPHEN
  11. metoprolol er succinate 100mg [Concomitant]
  12. potassium 20meq tablets [Concomitant]
  13. vitamin D 1000 unit tablets [Concomitant]
  14. warfarin 10mg [Concomitant]

REACTIONS (1)
  - Death [None]

NARRATIVE: CASE EVENT DATE: 20230408
